FAERS Safety Report 24686599 (Version 1)
Quarter: 2024Q4

REPORT INFORMATION
  Report Type: Other
  Country: CA (occurrence: CA)
  Receive Date: 20241202
  Receipt Date: 20241202
  Transmission Date: 20250115
  Serious: Yes (Other)
  Sender: Atnahs Healthcare
  Company Number: CA-ATNAHS-ATNAHS20241100755

PATIENT
  Age: 76 Year
  Sex: Male

DRUGS (6)
  1. NAPROXEN SODIUM [Suspect]
     Active Substance: NAPROXEN SODIUM
     Indication: Headache
  2. ABRILADA [Concomitant]
     Active Substance: ADALIMUMAB-AFZB
     Indication: Ankylosing spondylitis
     Dosage: UNK
  3. ABRILADA [Concomitant]
     Active Substance: ADALIMUMAB-AFZB
     Dosage: 40 MG
  4. CELEBREX [Concomitant]
     Active Substance: CELECOXIB
     Indication: Ankylosing spondylitis
  5. METHOTREXATE [Concomitant]
     Active Substance: METHOTREXATE
     Indication: Ankylosing spondylitis
  6. TYLENOL [Concomitant]
     Active Substance: ACETAMINOPHEN
     Indication: Headache

REACTIONS (6)
  - Diabetes mellitus [Not Recovered/Not Resolved]
  - Ear pain [Not Recovered/Not Resolved]
  - Neck pain [Not Recovered/Not Resolved]
  - Pain in jaw [Not Recovered/Not Resolved]
  - Drug ineffective [Not Recovered/Not Resolved]
  - Dizziness [Not Recovered/Not Resolved]
